FAERS Safety Report 15979432 (Version 1)
Quarter: 2019Q1

REPORT INFORMATION
  Report Type: Spontaneous
  Country: US (occurrence: US)
  Receive Date: 20190219
  Receipt Date: 20190219
  Transmission Date: 20190418
  Serious: No
  Sender: FDA-Public Use
  Company Number: US-PFIZER INC-2019061959

PATIENT
  Age: 32 Year
  Sex: Female
  Weight: 158.76 kg

DRUGS (1)
  1. LYRICA [Suspect]
     Active Substance: PREGABALIN
     Indication: NEURALGIA
     Dosage: 300 MG, 3X/DAY
     Route: 048
     Dates: start: 201810, end: 201901

REACTIONS (3)
  - Hypoaesthesia [Unknown]
  - Prescribed overdose [Unknown]
  - Weight decreased [Unknown]
